FAERS Safety Report 8757239 (Version 2)
Quarter: 2012Q4

REPORT INFORMATION
  Report Type: 
  Country: US (occurrence: US)
  Receive Date: 20120828
  Receipt Date: 20121012
  Transmission Date: 20130627
  Serious: Yes (Hospitalization)
  Sender: FDA-Public Use
  Company Number: US-VERTEX PHARMACEUTICAL INC.-2012-019665

PATIENT
  Age: 60 Year
  Sex: Male
  Weight: 69 kg

DRUGS (6)
  1. INCIVEK [Suspect]
     Indication: HEPATITIS C
     Dosage: 750 mg, tid
     Route: 048
     Dates: start: 20120329, end: 20120605
  2. RIBASPHERE [Suspect]
     Indication: HEPATITIS C
     Dosage: 400 mg AM, 600 mg PM, qd
     Route: 048
     Dates: start: 20120329, end: 20120630
  3. PEGASYS [Suspect]
     Indication: HEPATITIS C
     Dosage: 180 ?g, UNK
     Route: 058
     Dates: start: 20120329, end: 20120630
  4. LISINOPRIL [Concomitant]
     Indication: HYPERTENSION
     Dosage: 10 mg, qd
     Route: 048
  5. METOPROLOL [Concomitant]
     Indication: HYPERTENSION
     Dosage: 25 mg, bid
     Route: 048
  6. VENLAFAXINE [Concomitant]
     Indication: DEPRESSION
     Dosage: 75 mg, qd
     Route: 048

REACTIONS (15)
  - Staphylococcal infection [Not Recovered/Not Resolved]
  - Skin ulcer [Not Recovered/Not Resolved]
  - White blood cell count decreased [Not Recovered/Not Resolved]
  - Drug eruption [Not Recovered/Not Resolved]
  - Anaemia [Not Recovered/Not Resolved]
  - Platelet count decreased [Not Recovered/Not Resolved]
  - Skin fissures [Not Recovered/Not Resolved]
  - Alopecia [Not Recovered/Not Resolved]
  - Hypothyroidism [Not Recovered/Not Resolved]
  - Anal pruritus [Recovered/Resolved]
  - Anorectal discomfort [Recovered/Resolved]
  - Dysgeusia [Recovered/Resolved]
  - Diarrhoea [Recovered/Resolved]
  - Vomiting [Recovered/Resolved]
  - Nausea [Recovered/Resolved]
